FAERS Safety Report 19249577 (Version 2)
Quarter: 2022Q1

REPORT INFORMATION
  Report Type: Other
  Country: TN (occurrence: None)
  Receive Date: 20210512
  Receipt Date: 20220116
  Transmission Date: 20220423
  Serious: Yes (Other)
  Sender: FDA-Public Use
  Company Number: TN-DEXPHARM-20210640

PATIENT
  Age: 40 Year

DRUGS (4)
  1. MEFENAMIC ACID [Suspect]
     Active Substance: MEFENAMIC ACID
  2. DICLOFENAC [Suspect]
     Active Substance: DICLOFENAC
  3. ACETAMINOPHEN [Concomitant]
     Active Substance: ACETAMINOPHEN
  4. LANSOPRAZOLE [Concomitant]
     Active Substance: LANSOPRAZOLE

REACTIONS (2)
  - Cross sensitivity reaction [Unknown]
  - Fixed eruption [Unknown]
